FAERS Safety Report 5916827-0 (Version None)
Quarter: 2008Q4

REPORT INFORMATION
  Report Type: 
  Country: None (occurrence: None)
  Receive Date: 20081013
  Receipt Date: 20081001
  Transmission Date: 20090506
  Serious: Yes (Hospitalization, Other)
  Sender: FDA-Public Use
  Company Number: JP-PFIZER INC-2008083310

PATIENT
  Age: 45 Year
  Sex: Female

DRUGS (2)
  1. PROVERA [Suspect]
     Indication: HORMONE REPLACEMENT THERAPY
     Route: 048
     Dates: start: 20070801
  2. ESTRADIOL [Suspect]
     Indication: HORMONE REPLACEMENT THERAPY
     Dates: start: 20070801

REACTIONS (3)
  - ALTERED STATE OF CONSCIOUSNESS [None]
  - THROMBOTIC THROMBOCYTOPENIC PURPURA [None]
  - WITHDRAWAL BLEED [None]
